FAERS Safety Report 19231644 (Version 1)
Quarter: 2021Q2

REPORT INFORMATION
  Report Type: Spontaneous
  Country: JP (occurrence: JP)
  Receive Date: 20210507
  Receipt Date: 20210507
  Transmission Date: 20210717
  Serious: Yes (Hospitalization)
  Sender: FDA-Public Use
  Company Number: JP-PFIZER INC-2021463645

PATIENT
  Sex: Female

DRUGS (2)
  1. CHAMPIX [Suspect]
     Active Substance: VARENICLINE TARTRATE
     Dosage: UNK
     Route: 048
  2. CHAMPIX [Suspect]
     Active Substance: VARENICLINE TARTRATE
     Dosage: UNK
     Route: 048
     Dates: start: 2019

REACTIONS (9)
  - Dermatitis contact [Unknown]
  - Dry skin [Not Recovered/Not Resolved]
  - Myositis [Not Recovered/Not Resolved]
  - Eczema [Not Recovered/Not Resolved]
  - Skin discolouration [Unknown]
  - Axillary mass [Not Recovered/Not Resolved]
  - Swelling face [Unknown]
  - Limb injury [Unknown]
  - Skin mass [Not Recovered/Not Resolved]

NARRATIVE: CASE EVENT DATE: 2019
